FAERS Safety Report 8011231-6 (Version None)
Quarter: 2011Q4

REPORT INFORMATION
  Report Type: 
  Country: None (occurrence: None)
  Receive Date: 20111227
  Receipt Date: 20111227
  Transmission Date: 20120403
  Serious: Yes (Other)
  Sender: FDA-Public Use
  Company Number: None

PATIENT
  Age: 30 Year
  Sex: Female
  Weight: 81.646 kg

DRUGS (1)
  1. SEPTOCAINE [Suspect]

REACTIONS (3)
  - HYPOAESTHESIA ORAL [None]
  - NERVE INJURY [None]
  - GLOSSODYNIA [None]
